FAERS Safety Report 21105919 (Version 4)
Quarter: 2022Q3

REPORT INFORMATION
  Report Type: Spontaneous
  Country: FR (occurrence: FR)
  Receive Date: 20220720
  Receipt Date: 20220915
  Transmission Date: 20221026
  Serious: Yes (Hospitalization)
  Sender: FDA-Public Use
  Company Number: FR-VIIV HEALTHCARE LIMITED-FR2022EME106362

PATIENT
  Age: 46 Year
  Sex: Female

DRUGS (4)
  1. RILPIVIRINE [Suspect]
     Active Substance: RILPIVIRINE
     Indication: Antiviral treatment
     Dosage: 1 MONTH
     Route: 030
     Dates: start: 20220608, end: 20220705
  2. VOCABRIA [Suspect]
     Active Substance: CABOTEGRAVIR SODIUM
     Indication: Antiviral treatment
     Dosage: UNK
     Route: 030
     Dates: start: 20220608, end: 20220705
  3. LEVOFLOXACIN [Concomitant]
     Active Substance: LEVOFLOXACIN
     Indication: Product used for unknown indication
     Dates: start: 20220608, end: 20220708
  4. AMITRIPTYLINE [Concomitant]
     Active Substance: AMITRIPTYLINE
     Indication: Pain
     Dates: start: 20220301

REACTIONS (3)
  - Viral load increased [Unknown]
  - Muscle atrophy [Not Recovered/Not Resolved]
  - Virologic failure [Unknown]

NARRATIVE: CASE EVENT DATE: 20220101
